FAERS Safety Report 13370862 (Version 2)
Quarter: 2017Q2

REPORT INFORMATION
  Report Type: Spontaneous
  Country: ES (occurrence: ES)
  Receive Date: 20170324
  Receipt Date: 20170516
  Transmission Date: 20170830
  Serious: Yes (Life-Threatening, Hospitalization)
  Sender: FDA-Public Use
  Company Number: ES-JNJFOC-20170323712

PATIENT
  Age: 19 Year
  Sex: Male
  Weight: 77 kg

DRUGS (1)
  1. CONCERTA [Suspect]
     Active Substance: METHYLPHENIDATE HYDROCHLORIDE
     Indication: SUICIDE ATTEMPT
     Route: 048
     Dates: start: 20170101, end: 20170129

REACTIONS (2)
  - Intentional overdose [Unknown]
  - Psychotic disorder [Recovering/Resolving]

NARRATIVE: CASE EVENT DATE: 20170129
